FAERS Safety Report 5451157-5 (Version None)
Quarter: 2007Q3

REPORT INFORMATION
  Report Type: 
  Country: None (occurrence: None)
  Receive Date: 20070913
  Receipt Date: 20070904
  Transmission Date: 20080115
  Serious: Yes (Death, Life-Threatening, Hospitalization)
  Sender: FDA-Public Use
  Company Number: NL-BAYER-200715019GDS

PATIENT
  Age: 65 Year
  Sex: Male

DRUGS (20)
  1. SORAFENIB [Suspect]
     Indication: NON-SMALL CELL LUNG CANCER
     Dosage: TOTAL DAILY DOSE: 800 MG
     Route: 048
     Dates: start: 20070814, end: 20070826
  2. CISPLATIN [Suspect]
     Indication: NON-SMALL CELL LUNG CANCER
     Route: 042
     Dates: start: 20070814, end: 20070814
  3. GEMCITABINE HCL [Suspect]
     Indication: NON-SMALL CELL LUNG CANCER
     Route: 042
     Dates: start: 20070822, end: 20070822
  4. GEMCITABINE HCL [Suspect]
     Route: 042
     Dates: start: 20070814, end: 20070814
  5. AMITRIPTYLINE HCL [Concomitant]
     Indication: INTERCOSTAL NEURALGIA
     Route: 065
     Dates: start: 20070821, end: 20070825
  6. AMITRIPTYLINE HCL [Concomitant]
     Route: 065
     Dates: start: 20070720, end: 20070821
  7. LYRICA [Concomitant]
     Indication: INTERCOSTAL NEURALGIA
     Route: 065
     Dates: start: 20070401, end: 20070825
  8. OMEPRAZOLE [Concomitant]
     Indication: PROPHYLAXIS
     Route: 065
     Dates: start: 20070809, end: 20070825
  9. ATROVENT [Concomitant]
     Indication: DYSPNOEA
     Route: 065
     Dates: start: 20070815, end: 20070819
  10. CODEINE SUL TAB [Concomitant]
     Indication: COUGH
     Route: 065
     Dates: start: 20070815, end: 20070825
  11. TEMAZEPAM [Concomitant]
     Indication: INSOMNIA
     Route: 065
     Dates: start: 20070819, end: 20070825
  12. TRAMADOL HCL [Concomitant]
     Indication: INTERCOSTAL NEURALGIA
  13. LACTULOSE [Concomitant]
     Indication: CONSTIPATION PROPHYLAXIS
     Route: 048
     Dates: start: 20070821, end: 20070825
  14. PARACETAMOL [Concomitant]
     Indication: INTERCOSTAL NEURALGIA
     Route: 065
     Dates: start: 20070821, end: 20070825
  15. FRAXIPARINE [Concomitant]
     Indication: PROPHYLAXIS
     Route: 065
     Dates: start: 20070821, end: 20070825
  16. DICLOFENAC [Concomitant]
     Indication: INTERCOSTAL NEURALGIA
     Route: 065
     Dates: start: 20070823, end: 20070825
  17. FLOXAPEN [Concomitant]
     Indication: FEBRILE INFECTION
     Route: 065
     Dates: start: 20070823, end: 20070825
  18. SLOW-K [Concomitant]
     Indication: HYPOKALAEMIA
     Route: 065
     Dates: start: 20070823, end: 20070825
  19. ZINACEF [Concomitant]
     Indication: PYREXIA
     Route: 065
     Dates: start: 20070825, end: 20070825
  20. DURAGESIC-100 [Concomitant]
     Indication: PAIN
     Route: 065
     Dates: start: 20070825, end: 20070826

REACTIONS (3)
  - GASTROINTESTINAL HAEMORRHAGE [None]
  - LEUKOPENIA [None]
  - THROMBOCYTOPENIA [None]
